FAERS Safety Report 6424244-2 (Version None)
Quarter: 2009Q4

REPORT INFORMATION
  Report Type: 
  Country: None (occurrence: None)
  Receive Date: 20091102
  Receipt Date: 20091021
  Transmission Date: 20100525
  Serious: Yes (Hospitalization)
  Sender: FDA-Public Use
  Company Number: FR-PFIZER INC-2009286401

PATIENT
  Age: 53 Year
  Sex: Female

DRUGS (4)
  1. ALDACTONE [Suspect]
     Indication: ASCITES
     Dosage: 150 MG, 3X/DAY
     Route: 048
     Dates: end: 20090225
  2. ALDACTONE [Suspect]
     Dosage: 6 TABLETS DAY
  3. VENLAFAXINE HYDROCHLORIDE [Suspect]
     Indication: DEPRESSION
     Dosage: 75 MG, 3X/DAY
     Route: 048
  4. LIORESAL [Suspect]
     Indication: MUSCLE CONTRACTURE
     Dosage: 30 MG, 3X/DAY
     Route: 048
     Dates: end: 20090225

REACTIONS (1)
  - HEPATIC ENCEPHALOPATHY [None]
